FAERS Safety Report 15862542 (Version 1)
Quarter: 2019Q1

REPORT INFORMATION
  Report Type: Spontaneous
  Country: CZ (occurrence: CZ)
  Receive Date: 20190124
  Receipt Date: 20190124
  Transmission Date: 20190417
  Serious: Yes (Life-Threatening)
  Sender: FDA-Public Use
  Company Number: CZ-ALK-ABELLO A/S-2019AA000176

PATIENT

DRUGS (2)
  1. LEVOCETIRIZINE [Concomitant]
     Active Substance: LEVOCETIRIZINE
     Indication: RHINITIS ALLERGIC
     Dosage: 0.5 TAB
     Route: 048
     Dates: start: 2018
  2. GRAZAX [Suspect]
     Active Substance: PHLEUM PRATENSE POLLEN
     Indication: SEASONAL ALLERGY
     Dosage: 75000 SQ
     Dates: start: 20190110, end: 20190110

REACTIONS (4)
  - Dyspnoea [Recovered/Resolved]
  - Circulatory collapse [Recovered/Resolved]
  - Wheezing [Recovered/Resolved]
  - Nausea [Recovered/Resolved]

NARRATIVE: CASE EVENT DATE: 20190110
